FAERS Safety Report 14982992 (Version 1)
Quarter: 2018Q2

REPORT INFORMATION
  Report Type: Spontaneous
  Country: US (occurrence: US)
  Receive Date: 20180607
  Receipt Date: 20180607
  Transmission Date: 20180711
  Serious: No
  Sender: FDA-Public Use
  Company Number: US-GLAXOSMITHKLINE-US2018098355

PATIENT
  Sex: Female

DRUGS (6)
  1. VENTOLIN [Concomitant]
     Active Substance: ALBUTEROL SULFATE
  2. LOSARTAN. [Concomitant]
     Active Substance: LOSARTAN
  3. SPIRIVA [Concomitant]
     Active Substance: TIOTROPIUM BROMIDE MONOHYDRATE
  4. ADVAIR DISKUS [Suspect]
     Active Substance: FLUTICASONE PROPIONATE\SALMETEROL XINAFOATE
     Indication: CHRONIC OBSTRUCTIVE PULMONARY DISEASE
     Dosage: 1 PUFF(S), BID
     Route: 055
     Dates: start: 2018
  5. ALBUTEROL NEBULIZER [Concomitant]
     Active Substance: ALBUTEROL
  6. AMLODIPINE [Concomitant]
     Active Substance: AMLODIPINE BESYLATE

REACTIONS (2)
  - Dyspnoea [Recovering/Resolving]
  - Product label confusion [Recovered/Resolved]

NARRATIVE: CASE EVENT DATE: 20180601
